FAERS Safety Report 5454635-8 (Version None)
Quarter: 2007Q3

REPORT INFORMATION
  Report Type: 
  Country: None (occurrence: None)
  Receive Date: 20070917
  Receipt Date: 20060725
  Transmission Date: 20080115
  Serious: No
  Sender: FDA-Public Use
  Company Number: US-ASTRAZENECA-2006UW15043

PATIENT
  Age: 46 Year
  Sex: Male
  Weight: 79.4 kg

DRUGS (5)
  1. SEROQUEL [Suspect]
     Indication: MANIA
     Route: 048
     Dates: start: 20050701
  2. TEGRETOL [Concomitant]
  3. DEPAKOTE [Concomitant]
     Dates: start: 20060719
  4. DEPAKOTE [Concomitant]
  5. KLONOPIN [Concomitant]

REACTIONS (4)
  - ASTHENIA [None]
  - FATIGUE [None]
  - FEELING ABNORMAL [None]
  - PANCREATIC CYST [None]
